FAERS Safety Report 25455461 (Version 1)
Quarter: 2025Q2

REPORT INFORMATION
  Report Type: Spontaneous
  Country: CN (occurrence: CN)
  Receive Date: 20250619
  Receipt Date: 20250619
  Transmission Date: 20250716
  Serious: Yes (Hospitalization)
  Sender: KYOWA
  Company Number: CN-KYOWAKIRIN-2025KK011238

PATIENT

DRUGS (1)
  1. TOREMIFENE [Suspect]
     Active Substance: TOREMIFENE
     Indication: Breast cancer
     Dosage: 60 MG, QD (60 MG, 1 TIME/D)
     Route: 048
     Dates: end: 20240416

REACTIONS (3)
  - Endometrial hyperplasia [Recovering/Resolving]
  - Anaemia [Recovered/Resolved]
  - Abnormal uterine bleeding [Recovered/Resolved]
